FAERS Safety Report 8143319-3 (Version None)
Quarter: 2012Q1

REPORT INFORMATION
  Report Type: 
  Country: None (occurrence: None)
  Receive Date: 20120217
  Receipt Date: 20120208
  Transmission Date: 20120608
  Serious: Yes (Hospitalization)
  Sender: FDA-Public Use
  Company Number: JP-PFIZER INC-2011246709

PATIENT
  Age: 69 Year
  Sex: Male

DRUGS (11)
  1. ISOSORBIDE DINITRATE [Concomitant]
     Dosage: UNK
     Dates: end: 20110921
  2. AZUCURENIN S [Concomitant]
     Dosage: UNK
     Dates: end: 20110921
  3. LIPITOR [Suspect]
     Dosage: 10 MG, UNK
     Route: 048
     Dates: end: 20110921
  4. AMARYL [Concomitant]
     Dosage: UNK
     Route: 048
     Dates: end: 20110921
  5. PL GRAN. [Concomitant]
     Dosage: UNK
     Dates: end: 20110921
  6. MICARDIS [Concomitant]
     Dosage: UNK
     Dates: end: 20110921
  7. DEXTROMETHORPHAN [Concomitant]
     Dosage: UNK
     Dates: end: 20110921
  8. ALLOPURINOL [Concomitant]
     Dosage: UNK
     Dates: end: 20110921
  9. LOXONIN [Concomitant]
     Dosage: UNK
     Dates: end: 20110921
  10. ASPIRIN [Concomitant]
     Dosage: UNK
     Dates: end: 20110921
  11. ADALAT CC [Concomitant]
     Dosage: UNK
     Dates: end: 20110921

REACTIONS (1)
  - PANCREATITIS [None]
